FAERS Safety Report 11937335 (Version 1)
Quarter: 2016Q1

REPORT INFORMATION
  Report Type: Spontaneous
  Country: US (occurrence: US)
  Receive Date: 20160121
  Receipt Date: 20160121
  Transmission Date: 20160526
  Serious: No
  Sender: FDA-Public Use
  Company Number: US-ELI_LILLY_AND_COMPANY-US201404003943

PATIENT
  Age: 67 Year
  Sex: Male

DRUGS (2)
  1. HUMULIN N [Suspect]
     Active Substance: INSULIN HUMAN
     Indication: DIABETES MELLITUS
     Dosage: 6 U, QD
     Route: 065
     Dates: start: 20140404
  2. HUMULIN N [Suspect]
     Active Substance: INSULIN HUMAN
     Dosage: 6 U, QD
     Route: 065

REACTIONS (2)
  - Visual impairment [Unknown]
  - Incorrect product storage [Unknown]

NARRATIVE: CASE EVENT DATE: 20140404
